FAERS Safety Report 9248581 (Version 1)
Quarter: 2013Q1

REPORT INFORMATION
  Report Type: Spontaneous
  Country: US (occurrence: None)
  Receive Date: 20130305
  Receipt Date: 20130305
  Transmission Date: 20140127
  Serious: Yes (Other)
  Sender: FDA-Public Use
  Company Number: 163-21880-12092800

PATIENT
  Age: 70 Year
  Sex: Female
  Weight: 117.94 kg

DRUGS (12)
  1. REVLIMID [Suspect]
     Indication: PLASMA CELL MYELOMA
     Dosage: 1 IN 1 D
     Route: 048
     Dates: start: 20120326
  2. ANTIBIOTICS (ANTIBIOTICS) [Suspect]
  3. AMOXICILLIN (AMOXICILLIN) [Suspect]
  4. ATACAND [Suspect]
  5. CALCIUM CARBONATE\CHOLECALCIFEROL [Suspect]
  6. CENTRUM [Suspect]
  7. CIPRODEX [Suspect]
  8. COD LIVER OIL [Suspect]
  9. INDAPAMIDE (INDAPAMIDE) [Suspect]
  10. NORVASC (AMLODIPINE BESILATE) [Suspect]
  11. PROBIOTIC [Suspect]
  12. ZOMETA (ZOLEDRONIC ACID) [Suspect]

REACTIONS (1)
  - Ear infection [None]
